FAERS Safety Report 6184520-8 (Version None)
Quarter: 2009Q2

REPORT INFORMATION
  Report Type: 
  Country: None (occurrence: None)
  Receive Date: 20090508
  Receipt Date: 20090430
  Transmission Date: 20091009
  Serious: Yes (Hospitalization)
  Sender: FDA-Public Use
  Company Number: GB-AMGEN-QUU344120

PATIENT
  Sex: Male
  Weight: 77 kg

DRUGS (10)
  1. NEULASTA [Suspect]
     Indication: CHEMOTHERAPY
     Route: 058
     Dates: start: 20090109
  2. CISPLATIN [Concomitant]
     Route: 042
     Dates: start: 20090109
  3. BEVACIZUMAB [Concomitant]
     Route: 042
     Dates: start: 20090109
  4. PEMETREXED DISODIUM [Concomitant]
     Route: 042
     Dates: start: 20090109
  5. MANNITOL [Concomitant]
     Route: 042
     Dates: start: 20090109
  6. FRUSEMIDE [Concomitant]
     Route: 042
     Dates: start: 20090109
  7. ONDANSETRON [Concomitant]
     Route: 042
     Dates: start: 20090109
  8. HYDROCORTISONE [Concomitant]
     Route: 042
     Dates: start: 20090109
  9. CHLORPHENIRAMINE MALEATE [Concomitant]
     Route: 042
     Dates: start: 20090109
  10. ZOMETA [Concomitant]
     Route: 042
     Dates: start: 20090109

REACTIONS (3)
  - BONE PAIN [None]
  - CHILLS [None]
  - PYREXIA [None]
